FAERS Safety Report 5141730-6 (Version None)
Quarter: 2006Q4

REPORT INFORMATION
  Report Type: 
  Country: None (occurrence: None)
  Receive Date: 20061027
  Receipt Date: 20061009
  Transmission Date: 20070319
  Serious: Yes (Hospitalization)
  Sender: FDA-Public Use
  Company Number: ES200609006291

PATIENT
  Age: 75 Year
  Sex: Female

DRUGS (2)
  1. FORTEO [Suspect]
     Indication: OSTEOPOROSIS
     Dosage: 20 UG, SUBCUTANEOUS
     Route: 058
  2. FORTEO [Concomitant]

REACTIONS (9)
  - ANAEMIA [None]
  - DIALYSIS [None]
  - FATIGUE [None]
  - FEELING ABNORMAL [None]
  - GASTRIC ULCER [None]
  - MULTIPLE MYELOMA [None]
  - RENAL FAILURE ACUTE [None]
  - RENAL FAILURE CHRONIC [None]
  - SCAN BONE MARROW ABNORMAL [None]
